FAERS Safety Report 4510823-6 (Version None)
Quarter: 2004Q4

REPORT INFORMATION
  Report Type: 
  Country: None (occurrence: None)
  Receive Date: 20041025
  Receipt Date: 20031001
  Transmission Date: 20050328
  Serious: Yes (Hospitalization)
  Sender: FDA-Public Use
  Company Number: NSADSS2003010258

PATIENT
  Age: 20 Year
  Sex: 0
  Weight: 68.2664 kg

DRUGS (7)
  1. REMICADE [Suspect]
     Indication: CROHN'S DISEASE
     Dosage: 400 MG, INTRAVENOUS DRIP
     Route: 041
     Dates: start: 20030127
  2. METHOTREXATE SODIUM [Concomitant]
  3. MERCAPTOPURINE [Concomitant]
  4. IMURAN [Concomitant]
  5. STEROIDS (CORTICOSTEROID NOS) [Concomitant]
  6. DOXIPEN (DOXEPIN) [Concomitant]
  7. FOSAMAX [Concomitant]

REACTIONS (1)
  - LISTERIOSIS [None]
